FAERS Safety Report 5152075-2 (Version None)
Quarter: 2006Q4

REPORT INFORMATION
  Report Type: 
  Country: None (occurrence: None)
  Receive Date: 20061113
  Receipt Date: 20061113
  Transmission Date: 20070319
  Serious: No
  Sender: FDA-Public Use
  Company Number: None

PATIENT
  Sex: Female
  Weight: 61.8 kg

DRUGS (9)
  1. CARBOPLATIN [Suspect]
     Dosage: 579 MG
  2. TAXOL [Suspect]
     Dosage: 271 MG
  3. AVALIDE [Concomitant]
  4. CALCIUM [Concomitant]
  5. CYMBALTA [Concomitant]
  6. DECADRON [Concomitant]
  7. FOSAMAX [Concomitant]
  8. VITAMIN E [Concomitant]
  9. VYTORIN [Concomitant]

REACTIONS (1)
  - NEUTROPENIA [None]
